FAERS Safety Report 9727520 (Version 1)
Quarter: 2013Q4

REPORT INFORMATION
  Report Type: Spontaneous
  Country: FR (occurrence: None)
  Receive Date: 20131127
  Receipt Date: 20131127
  Transmission Date: 20140711
  Serious: Yes (Hospitalization)
  Sender: FDA-Public Use
  Company Number: SYM-2013-13298

PATIENT
  Age: 60 Year
  Sex: Male

DRUGS (4)
  1. 5 FU (FLUOROURACIL) [Suspect]
     Indication: COLORECTAL CANCER METASTATIC
     Dosage: 5600 MG, EVERY CYCLE, INTRAVENOUS DRIP
     Dates: start: 20131007, end: 20131007
  2. LEUCOVORIN (FOLINIC ACID) (SOLUTION FOR INFUSION) (FOLINIC ACID) [Suspect]
     Indication: COLORECTAL CANCER METASTATIC
     Dosage: 380 MG, EVERY OTHER WEEK, INTRAVENOUS DRIP
     Dates: start: 20131007, end: 20131007
  3. OXALIPLATIN (OXALIPLATIN) (SOLUTION FOR INFUSION) (OXALIPLATIN) [Suspect]
     Indication: COLORECTAL CANCER METASTATIC
     Dosage: 190MG, EVERY OTHER WEEK, INTRAVENOUS (NOT OTHERWISE SPECIFIED)
     Dates: start: 20131007, end: 20131007
  4. AFLIBERCEPT (AFLIBERCEPT) (SOLUTION FOR INFUSION) (AFLIBERCEPT) [Suspect]
     Indication: COLORECTAL CANCER METASTATIC
     Dosage: 300 MG, EVERY OTHER WEEK, INTRAVENOUS (NOT OTHERWISE SPECIFIED)
     Dates: start: 20131007, end: 20131007

REACTIONS (2)
  - Dyspnoea [None]
  - Chest pain [None]
